FAERS Safety Report 7490821-3 (Version None)
Quarter: 2011Q2

REPORT INFORMATION
  Report Type: 
  Country: None (occurrence: None)
  Receive Date: 20110519
  Receipt Date: 20110506
  Transmission Date: 20111010
  Serious: Yes (Hospitalization, Other)
  Sender: FDA-Public Use
  Company Number: US-ELI_LILLY_AND_COMPANY-US201102005406

PATIENT
  Sex: Female

DRUGS (19)
  1. LISINOPRIL [Concomitant]
  2. GUAIFENESIN [Concomitant]
  3. PRAVASTATIN [Concomitant]
  4. NITROGLYCERIN [Concomitant]
  5. CALCIUM CARBONATE [Concomitant]
  6. DILTIAZEM [Concomitant]
  7. FUROSEMIDE [Concomitant]
  8. METOPROLOL TARTRATE [Concomitant]
  9. WARFARIN SODIUM [Concomitant]
  10. HYDROCHLOROTHIAZIDE [Concomitant]
  11. HUMALOG [Concomitant]
  12. CITALOPRAM [Concomitant]
  13. ALPRAZOLAM [Concomitant]
  14. HYDROCODONE [Concomitant]
  15. MECLIZINE [Concomitant]
  16. CYCLOBENZAPRINE [Concomitant]
  17. LEVOTHYROXINE SODIUM [Concomitant]
  18. FORTEO [Suspect]
     Indication: OSTEOPOROSIS
     Dosage: 20 UG, DAILY (1/D)
     Route: 058
     Dates: start: 20100907
  19. CENTRUM [Concomitant]

REACTIONS (4)
  - NECK INJURY [None]
  - ARRHYTHMIA [None]
  - CONTUSION [None]
  - FALL [None]
